FAERS Safety Report 8979905 (Version 1)
Quarter: 2012Q4

REPORT INFORMATION
  Report Type: 
  Country: US (occurrence: US)
  Receive Date: 20121221
  Receipt Date: 20121221
  Transmission Date: 20130627
  Serious: No
  Sender: FDA-Public Use
  Company Number: US-PFIZER INC-2012322175

PATIENT
  Age: 71 Year
  Sex: Male
  Weight: 104.31 kg

DRUGS (2)
  1. VIAGRA [Suspect]
     Indication: ERECTILE DYSFUNCTION
     Dosage: 50 mg, 1x/day
     Route: 048
     Dates: start: 20121213, end: 20121215
  2. VIAGRA [Suspect]
     Dosage: 100 mg, 1x/day
     Route: 048
     Dates: start: 20121215, end: 20121215

REACTIONS (3)
  - Head discomfort [Unknown]
  - Headache [Unknown]
  - Drug ineffective [Unknown]
